FAERS Safety Report 6198566-7 (Version None)
Quarter: 2009Q2

REPORT INFORMATION
  Report Type: 
  Country: None (occurrence: None)
  Receive Date: 20090518
  Receipt Date: 20090430
  Transmission Date: 20091009
  Serious: Yes (Other)
  Sender: FDA-Public Use
  Company Number: 2008S1012252

PATIENT
  Age: 79 Year
  Sex: Male
  Weight: 83.9154 kg

DRUGS (6)
  1. PHOSPHOSODA FLAVOR NOT SPECIFIED [Suspect]
     Indication: COLONOSCOPY
     Dosage: 90 ML; TOTAL; PO
     Route: 048
     Dates: start: 20070509, end: 20070509
  2. ENALAPRIL MALEATE [Concomitant]
  3. CRESOR /01588602/ [Concomitant]
  4. DOXAZOSIN MESYLATE [Concomitant]
  5. NIFEDICAL [Concomitant]
  6. AVODART [Concomitant]

REACTIONS (2)
  - NEPHROPATHY [None]
  - RENAL FAILURE CHRONIC [None]
